FAERS Safety Report 4657465-X (Version None)
Quarter: 2005Q2

REPORT INFORMATION
  Report Type: 
  Country: None (occurrence: None)
  Receive Date: 20050506
  Receipt Date: 20050429
  Transmission Date: 20051028
  Serious: Yes (Hospitalization, Disabling)
  Sender: FDA-Public Use
  Company Number: TPA2005A00502

PATIENT
  Age: 62 Year
  Sex: Male
  Weight: 95.2554 kg

DRUGS (1)
  1. ACTOS [Suspect]
     Indication: DIABETES MELLITUS NON-INSULIN-DEPENDENT
     Dosage: 45 MG, 1 IN 1 D, PER ORAL
     Route: 048

REACTIONS (5)
  - ACCIDENT AT WORK [None]
  - COMPLEX REGIONAL PAIN SYNDROME [None]
  - FALL [None]
  - HYPOKINESIA [None]
  - ROTATOR CUFF SYNDROME [None]
